FAERS Safety Report 16867182 (Version 1)
Quarter: 2019Q3

REPORT INFORMATION
  Report Type: Spontaneous
  Country: US (occurrence: US)
  Receive Date: 20190930
  Receipt Date: 20190930
  Transmission Date: 20191005
  Serious: Yes (Other)
  Sender: FDA-Public Use
  Company Number: US-BAYER-2019-173374

PATIENT
  Age: 76 Year
  Sex: Male

DRUGS (2)
  1. ACETYLSALICYLIC ACID (CARDIO) [Suspect]
     Active Substance: ASPIRIN
     Dosage: UNK
  2. APIXABAN [Interacting]
     Active Substance: APIXABAN
     Dosage: UNK

REACTIONS (4)
  - Gastrointestinal polyp haemorrhage [None]
  - Haemoglobin decreased [None]
  - Labelled drug-drug interaction medication error [None]
  - Haematemesis [None]
